FAERS Safety Report 11174557 (Version 1)
Quarter: 2015Q2

REPORT INFORMATION
  Report Type: Spontaneous
  Country: SI (occurrence: SI)
  Receive Date: 20150609
  Receipt Date: 20150609
  Transmission Date: 20150821
  Serious: Yes (Hospitalization)
  Sender: FDA-Public Use
  Company Number: PHHY2015SI065117

PATIENT
  Age: 35 Year
  Sex: Male

DRUGS (15)
  1. BUTYLSCOPOLAMINE [Suspect]
     Active Substance: BUTYLSCOPOLAMINE
     Indication: PRODUCT USED FOR UNKNOWN INDICATION
     Dosage: 10 MG, TID
     Route: 065
  2. VALPROATE SODIUM. [Suspect]
     Active Substance: VALPROATE SODIUM
     Indication: PRODUCT USED FOR UNKNOWN INDICATION
     Dosage: 1000 MG, ONCE/SINGLE
     Route: 065
  3. TROSPIUM [Suspect]
     Active Substance: TROSPIUM
     Indication: DYSURIA
     Dosage: 5 MG, TID
     Route: 065
  4. BUTYLSCOPOLAMINE [Suspect]
     Active Substance: BUTYLSCOPOLAMINE
     Dosage: 10 MG, BID
     Route: 065
  5. CLOMIPRAMINE HYDROCHLORIDE. [Suspect]
     Active Substance: CLOMIPRAMINE HYDROCHLORIDE
     Indication: PRODUCT USED FOR UNKNOWN INDICATION
     Dosage: 50 MG, TID
     Route: 065
  6. CLOZAPIN HEXAL [Suspect]
     Active Substance: CLOZAPINE
     Indication: PRODUCT USED FOR UNKNOWN INDICATION
     Dosage: 25 MG, TID
     Route: 065
  7. PARACETAMOL SANDOZ [Suspect]
     Active Substance: ACETAMINOPHEN
     Indication: PAIN IN EXTREMITY
     Dosage: 500 MG, TID
     Route: 065
  8. VALPROATE SODIUM. [Suspect]
     Active Substance: VALPROATE SODIUM
     Dosage: 300 MG, ONCE/SINGLE
     Route: 065
  9. CLOZAPIN HEXAL [Suspect]
     Active Substance: CLOZAPINE
     Dosage: 100 MG, TID, (1.5 MORNING, 1 AFTERNOON, 2 AT NIGHT)
     Route: 065
  10. CLOZAPIN HEXAL [Suspect]
     Active Substance: CLOZAPINE
     Dosage: 100 MG, TID
     Route: 065
  11. HALOPERIDOL. [Suspect]
     Active Substance: HALOPERIDOL
     Dosage: 10 DRP, TID, 10 MG/ML ORAL DROPS.
     Route: 065
  12. PROPANOLOL [Concomitant]
     Active Substance: PROPRANOLOL HYDROCHLORIDE
     Indication: PRODUCT USED FOR UNKNOWN INDICATION
     Dosage: 40 MG, TID, 0.5 TAB IN THE MORNING AND NIGHT.
     Route: 065
  13. HALOPERIDOL. [Suspect]
     Active Substance: HALOPERIDOL
     Indication: PRODUCT USED FOR UNKNOWN INDICATION
     Dosage: 20 DRP, TID, 10 MG/ML ORAL DROPS
     Route: 065
  14. DIAZEPAM. [Suspect]
     Active Substance: DIAZEPAM
     Indication: AGITATION
     Dosage: 5 MG, TID,+1 TBL IF NECESSARY (UPTO 2X/DAY)
     Route: 065
  15. CLOMIPRAMINE HYDROCHLORIDE. [Suspect]
     Active Substance: CLOMIPRAMINE HYDROCHLORIDE
     Dosage: 25 MG, TID
     Route: 065

REACTIONS (4)
  - Salivary hypersecretion [Unknown]
  - Agitation [Unknown]
  - Akathisia [Unknown]
  - Dysuria [Unknown]
